FAERS Safety Report 4778860-4 (Version None)
Quarter: 2005Q3

REPORT INFORMATION
  Report Type: 
  Country: None (occurrence: None)
  Receive Date: 20050922
  Receipt Date: 20050906
  Transmission Date: 20060218
  Serious: Yes (Other)
  Sender: FDA-Public Use
  Company Number: 060001L05GBR

PATIENT
  Age: 29 Year
  Sex: Female

DRUGS (1)
  1. CLOMIPHENE CITRATE [Suspect]
     Indication: ANOVULATORY CYCLE
     Dosage: 50 MG, 1 IN 1DAYS

REACTIONS (2)
  - GRAND MAL CONVULSION [None]
  - MALAISE [None]
